FAERS Safety Report 7606069-5 (Version None)
Quarter: 2011Q3

REPORT INFORMATION
  Report Type: 
  Country: None (occurrence: None)
  Receive Date: 20110713
  Receipt Date: 20110707
  Transmission Date: 20111222
  Serious: Yes (Other)
  Sender: FDA-Public Use
  Company Number: US-BAYER-2011-059804

PATIENT
  Age: 53 Year
  Sex: Female
  Weight: 49.887 kg

DRUGS (3)
  1. ONE-A-DAY WOMEN'S 50 + ADVANTAGE [Suspect]
     Dosage: 1 DF, QD, BOTTLE COUNT 150S
     Route: 048
     Dates: start: 20110626, end: 20110629
  2. OMEGA 3 FATTY ACIDS [Concomitant]
     Dosage: UNK UNK, QD
     Route: 048
  3. CALCIUM [CALCIUM] [Concomitant]
     Dosage: UNK UNK, QD
     Route: 048

REACTIONS (1)
  - BLOOD URINE PRESENT [None]
